FAERS Safety Report 7542399-3 (Version None)
Quarter: 2011Q2

REPORT INFORMATION
  Report Type: 
  Country: None (occurrence: None)
  Receive Date: 20110613
  Receipt Date: 20110609
  Transmission Date: 20111010
  Serious: Yes (Life-Threatening)
  Sender: FDA-Public Use
  Company Number: FR-ASTRAZENECA-2011SE35381

PATIENT
  Sex: Female

DRUGS (5)
  1. DIPRIVAN [Suspect]
     Indication: ANAESTHESIA
     Dosage: ONCE/SINGLE ADMINISTRATION
     Route: 042
     Dates: start: 20101215, end: 20101215
  2. TRACRIUM [Suspect]
     Indication: ANAESTHESIA
     Route: 042
     Dates: start: 20101215, end: 20101215
  3. SUFENTA PRESERVATIVE FREE [Suspect]
     Indication: ANAESTHESIA
     Dosage: ONCE/SINGLE ADMINISTRATION
     Route: 042
     Dates: start: 20101215, end: 20101215
  4. UNSPECIFIED CHEMOTHERAPY [Concomitant]
     Indication: OVARIAN CANCER
  5. ATARAX [Suspect]
     Indication: ANAESTHESIA
     Route: 048
     Dates: start: 20101215, end: 20101215

REACTIONS (3)
  - DYSPNOEA [None]
  - HAEMODYNAMIC INSTABILITY [None]
  - ERYTHEMA [None]
